FAERS Safety Report 9325001 (Version 3)
Quarter: 2013Q3

REPORT INFORMATION
  Report Type: Report from Study
  Country: KR (occurrence: KR)
  Receive Date: 20130603
  Receipt Date: 20130710
  Transmission Date: 20140515
  Serious: Yes (Other)
  Sender: FDA-Public Use
  Company Number: KR-JNJFOC-20130516020

PATIENT
  Age: 34 Year
  Sex: Female
  Weight: 75 kg

DRUGS (9)
  1. STELARA [Suspect]
     Indication: PSORIASIS
     Route: 058
     Dates: start: 20130703
  2. STELARA [Suspect]
     Indication: PSORIASIS
     Route: 058
     Dates: start: 20121121, end: 20130329
  3. LIPITOR [Concomitant]
     Indication: HYPERLIPIDAEMIA
     Route: 048
     Dates: start: 20130412, end: 20130510
  4. EVOPRIM [Concomitant]
     Indication: PRURITUS
     Route: 048
     Dates: start: 20130415
  5. MYPOL [Concomitant]
     Indication: HEADACHE
     Route: 048
     Dates: start: 20130423, end: 20130521
  6. STILNOX-CR [Concomitant]
     Indication: INSOMNIA
     Route: 048
     Dates: start: 20130423
  7. CELEBREX [Concomitant]
     Indication: ARTHRALGIA
     Route: 048
     Dates: start: 20130423
  8. OMED [Concomitant]
     Indication: GASTROINTESTINAL DISORDER
     Route: 048
     Dates: start: 20130423
  9. REMICUT [Concomitant]
     Indication: PRURITUS
     Route: 048
     Dates: start: 20130521

REACTIONS (1)
  - Haemoptysis [Recovered/Resolved]
